FAERS Safety Report 19991452 (Version 1)
Quarter: 2021Q4

REPORT INFORMATION
  Report Type: Spontaneous
  Country: US (occurrence: US)
  Receive Date: 20211025
  Receipt Date: 20211025
  Transmission Date: 20220303
  Serious: Yes (Life-Threatening, Hospitalization)
  Sender: FDA-Public Use
  Company Number: US-MYLANLABS-2021M1074519

PATIENT
  Age: 75 Year
  Sex: Female

DRUGS (2)
  1. NALOXONE [Suspect]
     Active Substance: NALOXONE
     Indication: Intentional product misuse
     Dosage: 0.4 MILLIGRAM
     Route: 042
  2. ACETAMINOPHEN\HYDROCODONE [Concomitant]
     Active Substance: ACETAMINOPHEN\HYDROCODONE
     Indication: Post herpetic neuralgia
     Dosage: UNK
     Route: 065

REACTIONS (3)
  - Pulmonary oedema [Recovering/Resolving]
  - Respiratory distress [Recovering/Resolving]
  - Stress cardiomyopathy [Unknown]
